FAERS Safety Report 7709006-8 (Version None)
Quarter: 2011Q3

REPORT INFORMATION
  Report Type: 
  Country: None (occurrence: None)
  Receive Date: 20110819
  Receipt Date: 20110808
  Transmission Date: 20111222
  Serious: Yes (Death, Hospitalization)
  Sender: FDA-Public Use
  Company Number: US-JNJFOC-20100505617

PATIENT
  Age: 83 Year
  Sex: Male
  Weight: 87 kg

DRUGS (2)
  1. DECITABINE [Suspect]
     Indication: MYELODYSPLASTIC SYNDROME
     Dosage: 60 MG, ORAL
     Route: 048
     Dates: start: 20100503, end: 20100503
  2. DECITABINE [Suspect]
     Indication: MYELODYSPLASTIC SYNDROME
     Dosage: 38.8 MG, 1 1 IN 1 DAY, INTRAVENOUS
     Route: 042
     Dates: start: 20100504, end: 20100507

REACTIONS (9)
  - FEBRILE NEUTROPENIA [None]
  - MYELODYSPLASTIC SYNDROME [None]
  - NEOPLASM PROGRESSION [None]
  - CONDITION AGGRAVATED [None]
  - GENERAL PHYSICAL HEALTH DETERIORATION [None]
  - LOSS OF CONSCIOUSNESS [None]
  - FALL [None]
  - ANAEMIA [None]
  - PNEUMONIA [None]
